FAERS Safety Report 5048296-X (Version None)
Quarter: 2006Q2

REPORT INFORMATION
  Report Type: 
  Country: None (occurrence: None)
  Receive Date: 20060601
  Receipt Date: 20060220
  Transmission Date: 20061013
  Serious: No
  Sender: FDA-Public Use
  Company Number: 2006PV008896

PATIENT
  Age: 40 Year
  Sex: Female
  Weight: 80.2867 kg

DRUGS (6)
  1. BYETTA [Suspect]
     Indication: DIABETES MELLITUS NON-INSULIN-DEPENDENT
     Dosage: SEE IMAGE
     Route: 058
     Dates: start: 20060120, end: 20060217
  2. BYETTA [Suspect]
     Indication: DIABETES MELLITUS NON-INSULIN-DEPENDENT
     Dosage: SEE IMAGE
     Route: 058
     Dates: start: 20060218
  3. AMARYL [Concomitant]
  4. METFORMIN HCL [Concomitant]
  5. PROGESTERONE [Concomitant]
  6. ESTRIOL [Concomitant]

REACTIONS (2)
  - FEELING COLD [None]
  - HYPERHIDROSIS [None]
